FAERS Safety Report 7672148-X (Version None)
Quarter: 2011Q3

REPORT INFORMATION
  Report Type: 
  Country: None (occurrence: None)
  Receive Date: 20110809
  Receipt Date: 20110727
  Transmission Date: 20111222
  Serious: Yes (Hospitalization, Other)
  Sender: FDA-Public Use
  Company Number: PHHY2011FR68227

PATIENT
  Sex: Female

DRUGS (10)
  1. FOLATE SODIUM [Concomitant]
  2. RED BLOOD CELLS [Concomitant]
  3. MICERA [Concomitant]
     Dosage: 100 UG, UNK
  4. CERTICAN [Suspect]
     Dosage: 3.5 MG DAILY
     Dates: start: 20110716
  5. PREDNISONE [Concomitant]
  6. ATORVASTATIN CALCIUM [Concomitant]
  7. CERTICAN [Suspect]
     Indication: RENAL TRANSPLANT
     Dosage: UNK
     Dates: start: 20110510
  8. VITAMIN B-12 [Concomitant]
     Dosage: UNK
  9. RAMIPRIL [Concomitant]
  10. NEUPOGEN [Concomitant]
     Dosage: 30 UG DAILY
     Dates: start: 20110713, end: 20110713

REACTIONS (8)
  - THROMBOCYTOPENIA [None]
  - PANCYTOPENIA [None]
  - ANISOCYTOSIS [None]
  - HAEMOGLOBIN DECREASED [None]
  - ERYTHROBLASTOSIS [None]
  - ANAEMIA [None]
  - RENAL FAILURE ACUTE [None]
  - NEUTROPENIA [None]
